FAERS Safety Report 5616462-8 (Version None)
Quarter: 2008Q1

REPORT INFORMATION
  Report Type: 
  Country: None (occurrence: None)
  Receive Date: 20080207
  Receipt Date: 20080128
  Transmission Date: 20080703
  Serious: Yes (Other)
  Sender: FDA-Public Use
  Company Number: DE-JNJFOC-20080104376

PATIENT
  Sex: Male

DRUGS (5)
  1. INVEGA [Suspect]
     Indication: AGGRESSION
     Route: 048
  2. INVEGA [Suspect]
     Indication: DELUSION
     Route: 048
  3. INVEGA [Suspect]
     Indication: DEMENTIA
     Route: 048
  4. REMINYL [Concomitant]
     Route: 048
  5. SEROQUEL [Concomitant]
     Route: 048

REACTIONS (1)
  - DERMATITIS BULLOUS [None]
